FAERS Safety Report 10402720 (Version 1)
Quarter: 2014Q3

REPORT INFORMATION
  Report Type: Spontaneous
  Country: US (occurrence: None)
  Receive Date: 20140821
  Receipt Date: 20140821
  Transmission Date: 20150326
  Serious: No
  Sender: FDA-Public Use
  Company Number: None

PATIENT
  Age: 67 Year
  Sex: Male
  Weight: 98.43 kg

DRUGS (1)
  1. TRAMADOL 50MG ? [Suspect]
     Active Substance: TRAMADOL
     Indication: ADJUVANT THERAPY
     Dosage: 1 TABLET PER 6 HOURS  THREE TIMES DAILY TAKEN BY MOUTH
     Route: 048
     Dates: start: 20140818, end: 20140820

REACTIONS (1)
  - Hallucination, visual [None]

NARRATIVE: CASE EVENT DATE: 20140819
